FAERS Safety Report 9516868 (Version 2)
Quarter: 2013Q4

REPORT INFORMATION
  Report Type: Report from Study
  Country: US (occurrence: US)
  Receive Date: 20130911
  Receipt Date: 20131217
  Transmission Date: 20140711
  Serious: No
  Sender: FDA-Public Use
  Company Number: US-VERTEX PHARMACEUTICALS INC-2013-009421

PATIENT
  Age: 48 Year
  Sex: Male
  Weight: 81.63 kg

DRUGS (4)
  1. VX-950 (TELAPREVIR) [Suspect]
     Indication: HEPATITIS C
     Dosage: 2 TABS
     Route: 048
     Dates: start: 20130829
  2. RIBAVIRIN [Suspect]
     Indication: HEPATITIS C
     Dosage: 1000 MG, QD
     Route: 048
     Dates: start: 20130829
  3. PEGASYS [Suspect]
     Indication: HEPATITIS C
     Dosage: 180 ?G, QW
     Route: 058
     Dates: start: 20130829
  4. METANX [Concomitant]
     Indication: ANAEMIA
     Dosage: 1 DF, QD

REACTIONS (15)
  - Weight decreased [Unknown]
  - Pain [Not Recovered/Not Resolved]
  - Eye pain [Unknown]
  - Gait disturbance [Unknown]
  - Dizziness [Unknown]
  - Injury [Unknown]
  - Skin discolouration [Not Recovered/Not Resolved]
  - Asthenia [Unknown]
  - Fatigue [Unknown]
  - White blood cell count decreased [Unknown]
  - Syncope [Unknown]
  - Oedema peripheral [Not Recovered/Not Resolved]
  - Red blood cell count decreased [Unknown]
  - Exfoliative rash [Not Recovered/Not Resolved]
  - Rash pruritic [Not Recovered/Not Resolved]
